FAERS Safety Report 5160904-1 (Version None)
Quarter: 2006Q4

REPORT INFORMATION
  Report Type: 
  Country: None (occurrence: None)
  Receive Date: 20061130
  Receipt Date: 20061122
  Transmission Date: 20070319
  Serious: Yes (Disabling)
  Sender: FDA-Public Use
  Company Number: RO-BRISTOL-MYERS SQUIBB COMPANY-13590013

PATIENT
  Age: 35 Year
  Sex: Female

DRUGS (3)
  1. ABILIFY [Suspect]
     Indication: SCHIZOPHRENIA
     Route: 048
     Dates: start: 20050809
  2. LORAZEPAM [Concomitant]
  3. DIAZEPAM [Concomitant]

REACTIONS (6)
  - DYSKINESIA [None]
  - HALLUCINATION, AUDITORY [None]
  - MENSTRUAL DISORDER [None]
  - MUSCLE CONTRACTIONS INVOLUNTARY [None]
  - PREGNANCY [None]
  - SUFFOCATION FEELING [None]
